FAERS Safety Report 18294087 (Version 2)
Quarter: 2020Q4

REPORT INFORMATION
  Report Type: Spontaneous
  Country: JP (occurrence: JP)
  Receive Date: 20200922
  Receipt Date: 20201013
  Transmission Date: 20210113
  Serious: Yes (Disabling)
  Sender: FDA-Public Use
  Company Number: JP-BIODELIVERY SCIENCES INTERNATIONAL-E2B_00001327

PATIENT
  Age: 63 Year
  Sex: Male
  Weight: 60.6 kg

DRUGS (11)
  1. NALDEMEDINE [Suspect]
     Active Substance: NALDEMEDINE
     Indication: CONSTIPATION
     Dosage: 0.2 MG, QD
     Route: 065
     Dates: start: 20181210
  2. CELECOXIB. [Concomitant]
     Active Substance: CELECOXIB
  3. DULOXETINE HYDROCHLORIDE. [Suspect]
     Active Substance: DULOXETINE HYDROCHLORIDE
     Dosage: 60 MG, QD
     Route: 065
     Dates: start: 20191213, end: 20200121
  4. DULOXETINE HYDROCHLORIDE. [Suspect]
     Active Substance: DULOXETINE HYDROCHLORIDE
     Dosage: 40 MG, QD
     Route: 065
     Dates: start: 20191206
  5. ZINGIBER OFFICINALE RHIZOME/ATRACTYLODES LANCEA RHIZOME/SINOMENIUM ACUTUM STEM/ZIZIPHUS JUJUBA VAR. [Concomitant]
     Indication: DEHYDRATION
     Dosage: 7.5 G, QD
     Route: 048
     Dates: start: 20181210
  6. DULOXETINE HYDROCHLORIDE. [Suspect]
     Active Substance: DULOXETINE HYDROCHLORIDE
     Indication: OSTEOARTHRITIS
     Dosage: 20 MG, QD
     Route: 065
     Dates: start: 20191128
  7. RABBIT VACCINIA EXTRACT [Concomitant]
     Active Substance: ORYCTOLAGUS CUNICULUS SKIN
     Indication: NEURALGIA
     Dosage: 4 {DF}, QD
     Route: 048
     Dates: start: 20181210
  8. CELECOXIB. [Concomitant]
     Active Substance: CELECOXIB
     Indication: NEURALGIA
     Dosage: 2 {DF}, QD
     Route: 048
     Dates: start: 20181210
  9. ADENOSINE TRIPHOSPHATE, DISODIUM SALT [Concomitant]
     Active Substance: ADENOSINE TRIPHOSPHATE DISODIUM
     Indication: DIZZINESS
     Dosage: 3 {DF}, QD
     Route: 048
     Dates: start: 20181210
  10. PREGABALIN. [Suspect]
     Active Substance: PREGABALIN
     Indication: OSTEOARTHRITIS
     Dosage: 150 MG, QD
     Route: 065
     Dates: start: 20181210
  11. PARACETAMOL/TRAMADOL HYDROCHLORIDE [Concomitant]
     Active Substance: ACETAMINOPHEN\TRAMADOL HYDROCHLORIDE
     Indication: OSTEOARTHRITIS
     Dosage: 4 {DF}, QD
     Route: 065
     Dates: start: 20181210, end: 20191128

REACTIONS (1)
  - Dysuria [Recovering/Resolving]

NARRATIVE: CASE EVENT DATE: 20200116
